FAERS Safety Report 22620592 (Version 2)
Quarter: 2023Q2

REPORT INFORMATION
  Report Type: Report from Study
  Country: CO (occurrence: CO)
  Receive Date: 20230620
  Receipt Date: 20230626
  Transmission Date: 20230722
  Serious: Yes (Death, Hospitalization, Other)
  Sender: FDA-Public Use
  Company Number: CO-TAKEDA-CO202006294

PATIENT
  Age: 72 Year
  Sex: Male
  Weight: 54 kg

DRUGS (6)
  1. ICATIBANT [Suspect]
     Active Substance: ICATIBANT ACETATE
     Indication: Hereditary angioedema
     Dosage: UNK
     Route: 058
     Dates: start: 2016
  2. ICATIBANT [Suspect]
     Active Substance: ICATIBANT ACETATE
     Indication: Hereditary angioedema
     Dosage: UNK
     Route: 058
     Dates: start: 2016
  3. ICATIBANT [Suspect]
     Active Substance: ICATIBANT ACETATE
     Dosage: UNK UNK, Q8HR
     Route: 058
     Dates: start: 2019
  4. ICATIBANT [Suspect]
     Active Substance: ICATIBANT ACETATE
     Dosage: UNK UNK, Q8HR
     Route: 058
     Dates: start: 2019
  5. ICATIBANT [Suspect]
     Active Substance: ICATIBANT ACETATE
     Dosage: UNK
     Route: 058
     Dates: start: 20200214
  6. ICATIBANT [Suspect]
     Active Substance: ICATIBANT ACETATE
     Dosage: UNK
     Route: 058
     Dates: start: 20200214

REACTIONS (12)
  - Cardio-respiratory arrest [Fatal]
  - Vasogenic cerebral oedema [Unknown]
  - Hypertensive crisis [Unknown]
  - Cerebellar stroke [Unknown]
  - Limb injury [Unknown]
  - Procedural complication [Recovered/Resolved]
  - Weight decreased [Unknown]
  - Asthenia [Unknown]
  - Urinary incontinence [Unknown]
  - Fatigue [Unknown]
  - Aphasia [Unknown]
  - Organ failure [Unknown]

NARRATIVE: CASE EVENT DATE: 20210830
